FAERS Safety Report 5800721-X (Version None)
Quarter: 2008Q3

REPORT INFORMATION
  Report Type: 
  Country: None (occurrence: None)
  Receive Date: 20080703
  Receipt Date: 20080623
  Transmission Date: 20090109
  Serious: Yes (Hospitalization)
  Sender: FDA-Public Use
  Company Number: US-ABBOTT-08P-163-0459484-00

PATIENT
  Sex: Female

DRUGS (2)
  1. VICODIN [Suspect]
     Indication: NEPHROLITHIASIS
     Dates: start: 20080225
  2. ACETAMINOPHEN [Suspect]
     Indication: NEPHROLITHIASIS
     Dates: start: 20080225

REACTIONS (4)
  - DRUG ADMINISTRATION ERROR [None]
  - DRUG EXPOSURE DURING PREGNANCY [None]
  - HEPATIC FAILURE [None]
  - PREMATURE SEPARATION OF PLACENTA [None]
